FAERS Safety Report 8214681-8 (Version None)
Quarter: 2012Q1

REPORT INFORMATION
  Report Type: 
  Country: None (occurrence: None)
  Receive Date: 20120316
  Receipt Date: 20120305
  Transmission Date: 20120608
  Serious: Yes (Other)
  Sender: FDA-Public Use
  Company Number: BD-ASTELLAS-2012US001512

PATIENT
  Age: 14 Year
  Sex: Female
  Weight: 40 kg

DRUGS (2)
  1. AMBISOME [Suspect]
     Indication: VISCERAL LEISHMANIASIS
     Dosage: 200 MG, UNKNOWN/D
     Route: 065
     Dates: start: 20101220
  2. ALBENDAZOLE [Concomitant]
     Indication: PRODUCT USED FOR UNKNOWN INDICATION
     Dosage: 400 MG, UNKNOWN/D
     Route: 065
     Dates: start: 20111220, end: 20111220

REACTIONS (1)
  - RHABDOMYOLYSIS [None]
